FAERS Safety Report 8378950-3 (Version None)
Quarter: 2012Q2

REPORT INFORMATION
  Report Type: 
  Country: None (occurrence: None)
  Receive Date: 20120523
  Receipt Date: 20120518
  Transmission Date: 20120825
  Serious: No
  Sender: FDA-Public Use
  Company Number: US-PFIZER INC-2012089685

PATIENT
  Sex: Female
  Weight: 86.168 kg

DRUGS (5)
  1. IBUPROFEN [Suspect]
  2. LYRICA [Suspect]
     Dosage: 150 MG, 2X/DAY
     Route: 048
     Dates: start: 20111201, end: 20120301
  3. IBUPROFEN [Suspect]
     Indication: PAIN
     Dosage: 200 MG, UNK
     Dates: start: 20120401, end: 20120401
  4. LEXAPRO [Concomitant]
     Indication: DEPRESSION
     Dosage: UNK
  5. LYRICA [Suspect]
     Indication: FIBROMYALGIA
     Dosage: 150 MG, 2X/DAY
     Route: 048
     Dates: start: 20090101, end: 20090101

REACTIONS (3)
  - AGITATION [None]
  - PAIN [None]
  - ABDOMINAL DISCOMFORT [None]
